FAERS Safety Report 9002207 (Version 2)
Quarter: 2013Q1

REPORT INFORMATION
  Report Type: Spontaneous
  Country: US (occurrence: US)
  Receive Date: 20130107
  Receipt Date: 20130207
  Transmission Date: 20140127
  Serious: No
  Sender: FDA-Public Use
  Company Number: US-009507513-1301USA000573

PATIENT
  Sex: Male
  Weight: 112.2 kg

DRUGS (8)
  1. PEGINTRON [Suspect]
     Dosage: 150 MICROGRAM/0.5 ML, QW
     Route: 058
  2. RIBASPHERE [Suspect]
     Dosage: 200 MG, UNK
     Route: 048
  3. FUROSEMIDE [Concomitant]
     Dosage: 20 MG, UNK
     Route: 048
  4. SPIRONOLACT [Concomitant]
     Dosage: 25 MG, UNK
     Route: 048
  5. LISINOPRIL [Concomitant]
     Dosage: 5 MG, UNK
     Route: 048
  6. LEVOTHYROXINE SODIUM [Concomitant]
     Dosage: 25 MICROGRAM, UNK
     Route: 048
  7. METOPROLOL [Concomitant]
     Dosage: 25 MG, UNK
     Route: 048
  8. ZOLOFT [Concomitant]

REACTIONS (10)
  - Anaemia [Unknown]
  - Injection site erythema [Unknown]
  - Palpitations [Unknown]
  - Weight decreased [Unknown]
  - Weight decreased [Unknown]
  - Rash [Unknown]
  - Dyspnoea [Unknown]
  - Fatigue [Unknown]
  - Depression [Unknown]
  - Rash [Unknown]
